FAERS Safety Report 7129358-X (Version None)
Quarter: 2010Q4

REPORT INFORMATION
  Report Type: 
  Country: None (occurrence: None)
  Receive Date: 20101130
  Receipt Date: 20101128
  Transmission Date: 20110411
  Serious: No
  Sender: FDA-Public Use
  Company Number: US-PFIZER INC-2010158782

PATIENT
  Sex: Male
  Weight: 124.72 kg

DRUGS (1)
  1. CHANTIX [Suspect]
     Indication: SMOKING CESSATION THERAPY
     Dosage: 0.5 MG, 1X/DAY
     Route: 048
     Dates: start: 20101101, end: 20101101

REACTIONS (4)
  - HEADACHE [None]
  - NECK PAIN [None]
  - PAIN IN JAW [None]
  - RASH ERYTHEMATOUS [None]
